FAERS Safety Report 7819755-9 (Version None)
Quarter: 2011Q4

REPORT INFORMATION
  Report Type: 
  Country: None (occurrence: None)
  Receive Date: 20111018
  Receipt Date: 20110719
  Transmission Date: 20120403
  Serious: No
  Sender: FDA-Public Use
  Company Number: US-ASTRAZENECA-2011SE36203

PATIENT
  Age: 72 Year
  Sex: Female

DRUGS (1)
  1. SYMBICORT [Suspect]
     Route: 055

REACTIONS (11)
  - DYSPNOEA [None]
  - DRUG DOSE OMISSION [None]
  - COUGH [None]
  - WHEEZING [None]
  - PHARYNGEAL OEDEMA [None]
  - DYSPHONIA [None]
  - HEADACHE [None]
  - ASTHMA [None]
  - BRONCHIAL SECRETION RETENTION [None]
  - CHEST PAIN [None]
  - BACK PAIN [None]
